FAERS Safety Report 4929947-4 (Version None)
Quarter: 2006Q1

REPORT INFORMATION
  Report Type: 
  Country: None (occurrence: None)
  Receive Date: 20060127
  Receipt Date: 20051108
  Transmission Date: 20060701
  Serious: Yes (Other)
  Sender: FDA-Public Use
  Company Number: 2005154360

PATIENT
  Age: 71 Year
  Sex: Female
  Weight: 113.3993 kg

DRUGS (12)
  1. LYRICA [Suspect]
     Indication: NEUROPATHY
     Dosage: 50 MG (50 MG 1 IN 1 D)
     Dates: start: 20051001, end: 20051103
  2. INSULIN (INSULIN) [Concomitant]
  3. SYNTHROID [Concomitant]
  4. COZAAR [Concomitant]
  5. BUMEX [Concomitant]
  6. ALDACTONE [Concomitant]
  7. ZETIA [Concomitant]
  8. TRICOR [Concomitant]
  9. METOPROLOL (METOPROLOL) [Concomitant]
  10. COUMADIN [Concomitant]
  11. NEURONTIN [Concomitant]
  12. CYMBALTA [Concomitant]

REACTIONS (1)
  - OEDEMA PERIPHERAL [None]
